FAERS Safety Report 5178448-X (Version None)
Quarter: 2006Q4

REPORT INFORMATION
  Report Type: 
  Country: None (occurrence: None)
  Receive Date: 20061218
  Receipt Date: 20060820
  Transmission Date: 20070319
  Serious: No
  Sender: FDA-Public Use
  Company Number: US-AMGEN-KDL190705

PATIENT
  Sex: Female

DRUGS (1)
  1. ENBREL [Suspect]
     Indication: ANKYLOSING SPONDYLITIS
     Route: 058
     Dates: start: 20060811

REACTIONS (5)
  - ASTHENIA [None]
  - INJECTION SITE REACTION [None]
  - NASOPHARYNGITIS [None]
  - RASH ERYTHEMATOUS [None]
  - RASH GENERALISED [None]
